FAERS Safety Report 5365369-2 (Version None)
Quarter: 2007Q2

REPORT INFORMATION
  Report Type: 
  Country: None (occurrence: None)
  Receive Date: 20070621
  Receipt Date: 20070612
  Transmission Date: 20071010
  Serious: Yes (Other)
  Sender: FDA-Public Use
  Company Number: JP-ROCHE-494086

PATIENT
  Age: 12 Year
  Sex: Male

DRUGS (5)
  1. TAMIFLU [Suspect]
     Route: 048
     Dates: start: 20070220, end: 20070220
  2. COCARL [Concomitant]
     Route: 048
     Dates: start: 20070220
  3. HUSCODE [Concomitant]
     Route: 048
     Dates: start: 20070220
  4. LYSOZYME HYDROCHLORIDE [Concomitant]
     Dosage: REPORTED AS: UNKNOWNDRUG(LYSOZYME HYDROCHLORIDE).
     Route: 048
     Dates: start: 20070220
  5. DEXCHLORPHENIRAMINE MALEATE [Concomitant]
     Route: 048
     Dates: start: 20070220

REACTIONS (3)
  - CONFUSIONAL STATE [None]
  - DEPRESSION [None]
  - OBSESSIVE-COMPULSIVE DISORDER [None]
